FAERS Safety Report 14249794 (Version 1)
Quarter: 2017Q4

REPORT INFORMATION
  Report Type: Spontaneous
  Country: US (occurrence: US)
  Receive Date: 20171204
  Receipt Date: 20171204
  Transmission Date: 20180321
  Serious: Yes (Other)
  Sender: FDA-Public Use
  Company Number: None

PATIENT
  Age: 5 Year
  Sex: Female
  Weight: 18.9 kg

DRUGS (7)
  1. FLUOCINOLONE [Suspect]
     Active Substance: FLUOCINOLONE
     Indication: DERMATITIS ALLERGIC
     Route: 061
     Dates: start: 20141201, end: 20141223
  2. FLUOCINOLONE [Suspect]
     Active Substance: FLUOCINOLONE
     Indication: ECZEMA
     Route: 061
     Dates: start: 20141201, end: 20141223
  3. ANTIHISTAMINES [Concomitant]
     Active Substance: ANTIHISTAMINES NOS
  4. GLYCINE. [Concomitant]
     Active Substance: GLYCINE
  5. SELENIUM [Concomitant]
     Active Substance: SELENIUM
  6. ZINC. [Concomitant]
     Active Substance: ZINC
  7. MULTI-VITAMIN [Concomitant]
     Active Substance: .ALPHA.-TOCOPHEROL ACETATE, DL-\ASCORBIC ACID\CYANOCOBALAMIN\FLUORIDE ION\FOLIC ACID\NIACIN\PYRIDOXINE\RIBOFLAVIN\THIAMINE\VITAMIN A\VITAMIN D

REACTIONS (12)
  - Chills [None]
  - Skin exfoliation [None]
  - Steroid withdrawal syndrome [None]
  - Drug dependence [None]
  - Skin hypertrophy [None]
  - Lymphadenopathy [None]
  - Impetigo [None]
  - Pruritus [None]
  - Eczema [None]
  - Swelling face [None]
  - Temperature regulation disorder [None]
  - Eczema herpeticum [None]

NARRATIVE: CASE EVENT DATE: 20141223
